FAERS Safety Report 19456602 (Version 1)
Quarter: 2021Q2

REPORT INFORMATION
  Report Type: Spontaneous
  Country: US (occurrence: US)
  Receive Date: 20210624
  Receipt Date: 20210624
  Transmission Date: 20210717
  Serious: No
  Sender: FDA-Public Use
  Company Number: US-AUROBINDO-AUR-APL-2020-060094

PATIENT
  Age: 77 Year
  Sex: Female

DRUGS (2)
  1. ZOLPIDEM TARTRATE TABLETS 10 MG [Suspect]
     Active Substance: ZOLPIDEM TARTRATE
     Dosage: 3 DOSAGE FORM
     Route: 048
     Dates: start: 20201201
  2. ZOLPIDEM TARTRATE TABLETS 10 MG [Suspect]
     Active Substance: ZOLPIDEM TARTRATE
     Indication: INSOMNIA
     Dosage: 2 DOSAGE FORM, DAILY IN EVENING
     Route: 048

REACTIONS (4)
  - Drug ineffective [Unknown]
  - Extra dose administered [Unknown]
  - Initial insomnia [Unknown]
  - Product substitution issue [Unknown]

NARRATIVE: CASE EVENT DATE: 20201201
